FAERS Safety Report 12788487 (Version 4)
Quarter: 2018Q4

REPORT INFORMATION
  Report Type: Report from Study
  Country: BR (occurrence: BR)
  Receive Date: 20160928
  Receipt Date: 20181217
  Transmission Date: 20190204
  Serious: Yes (Hospitalization, Other)
  Sender: FDA-Public Use
  Company Number: PHHY2015BR117174

PATIENT
  Sex: Male
  Weight: 78 kg

DRUGS (12)
  1. SANDOSTATIN LAR DEPOT [Suspect]
     Active Substance: OCTREOTIDE ACETATE
     Dosage: 30 MG, QMO (1 AMPOULE EVERY 28 DAYS)
     Route: 030
     Dates: start: 2012
  2. OMEPRAZOLE. [Concomitant]
     Active Substance: OMEPRAZOLE
     Indication: PRODUCT USED FOR UNKNOWN INDICATION
     Dosage: 1 DF, UNK
     Route: 065
  3. CABERGOLINE. [Concomitant]
     Active Substance: CABERGOLINE
     Indication: ACROMEGALY
     Dosage: UNK (1 TABLET ON MONDAY AND 1 TABLET ON THRUSDAY)
     Route: 065
     Dates: start: 2012
  4. CABERGOLINE. [Concomitant]
     Active Substance: CABERGOLINE
     Dosage: 5 MG (2 DF), QW
     Route: 065
  5. CABERGOLINE. [Concomitant]
     Active Substance: CABERGOLINE
     Dosage: TWICE A WEEK
     Route: 065
  6. PREDNISONA [Concomitant]
     Active Substance: PREDNISONE
     Indication: PRODUCT USED FOR UNKNOWN INDICATION
     Dosage: UNK
     Route: 065
  7. SANDOSTATIN LAR DEPOT [Suspect]
     Active Substance: OCTREOTIDE ACETATE
     Dosage: 30 MG, QMO (1 APPLICATION EVERY 28 DAYS)
     Route: 030
  8. SIMVASTATIN. [Suspect]
     Active Substance: SIMVASTATIN
     Indication: PRODUCT USED FOR UNKNOWN INDICATION
     Dosage: 1 OR HALF TABLET, Q2W
     Route: 065
  9. CABERGOLINE. [Concomitant]
     Active Substance: CABERGOLINE
     Dosage: UNK UNK,HALF A TABLET QD
     Route: 065
  10. SANDOSTATIN LAR DEPOT [Suspect]
     Active Substance: OCTREOTIDE ACETATE
     Indication: ACROMEGALY
     Dosage: 20 MG, UNK
     Route: 030
     Dates: start: 2012
  11. SANDOSTATIN LAR DEPOT [Suspect]
     Active Substance: OCTREOTIDE ACETATE
     Dosage: UNK
     Route: 030
     Dates: start: 20170926
  12. SALINE [Concomitant]
     Active Substance: SODIUM CHLORIDE
     Indication: PRODUCT USED FOR UNKNOWN INDICATION
     Route: 065

REACTIONS (43)
  - Swelling face [Unknown]
  - Nervousness [Not Recovered/Not Resolved]
  - Depressed mood [Unknown]
  - Nasal congestion [Recovering/Resolving]
  - Epistaxis [Recovering/Resolving]
  - Pallor [Unknown]
  - Blood growth hormone increased [Unknown]
  - Rhinorrhoea [Not Recovered/Not Resolved]
  - General physical health deterioration [Unknown]
  - Decreased appetite [Not Recovered/Not Resolved]
  - Eye disorder [Not Recovered/Not Resolved]
  - Secretion discharge [Not Recovered/Not Resolved]
  - Weight increased [Unknown]
  - Breath odour [Unknown]
  - Headache [Not Recovered/Not Resolved]
  - Pituitary tumour [Not Recovered/Not Resolved]
  - Weight decreased [Not Recovered/Not Resolved]
  - Feeling abnormal [Recovering/Resolving]
  - Hyperhidrosis [Unknown]
  - Anger [Unknown]
  - Syncope [Unknown]
  - Insulin-like growth factor increased [Unknown]
  - Malaise [Not Recovered/Not Resolved]
  - Drug effect decreased [Unknown]
  - Vomiting [Unknown]
  - Head titubation [Not Recovered/Not Resolved]
  - Concomitant disease aggravated [Not Recovered/Not Resolved]
  - Fall [Unknown]
  - Blood pressure increased [Unknown]
  - Anosmia [Unknown]
  - Ageusia [Unknown]
  - Hormone level abnormal [Not Recovered/Not Resolved]
  - Swelling [Unknown]
  - Insomnia [Unknown]
  - Head discomfort [Not Recovered/Not Resolved]
  - Tremor [Unknown]
  - Aggression [Unknown]
  - Dizziness [Not Recovered/Not Resolved]
  - Anxiety [Unknown]
  - Haematemesis [Not Recovered/Not Resolved]
  - Paraesthesia [Unknown]
  - Postoperative wound infection [Unknown]
  - Dyspnoea [Unknown]

NARRATIVE: CASE EVENT DATE: 2016
